FAERS Safety Report 6992541-8 (Version None)
Quarter: 2010Q3

REPORT INFORMATION
  Report Type: 
  Country: None (occurrence: None)
  Receive Date: 20100916
  Receipt Date: 20100916
  Transmission Date: 20110219
  Serious: Yes (Other)
  Sender: FDA-Public Use
  Company Number: None

PATIENT
  Age: 16 Year
  Sex: Female
  Weight: 54.4316 kg

DRUGS (4)
  1. LAMICTAL ODT [Suspect]
     Indication: BIPOLAR I DISORDER
     Dosage: 25 MG 1 X PER DAY PO
     Route: 048
     Dates: start: 20100824, end: 20100905
  2. LAMICTAL ODT [Suspect]
     Indication: CONVULSION
     Dosage: 25 MG 1 X PER DAY PO
     Route: 048
     Dates: start: 20100824, end: 20100905
  3. LAMICTAL ODT [Suspect]
     Indication: BIPOLAR I DISORDER
     Dosage: 50 MG. 1 X PER DAY PO
     Route: 048
     Dates: start: 20100906, end: 20100911
  4. LAMICTAL ODT [Suspect]
     Indication: CONVULSION
     Dosage: 50 MG. 1 X PER DAY PO
     Route: 048
     Dates: start: 20100906, end: 20100911

REACTIONS (5)
  - FATIGUE [None]
  - HOT FLUSH [None]
  - MUSCULOSKELETAL CHEST PAIN [None]
  - MYALGIA [None]
  - RASH PRURITIC [None]
